FAERS Safety Report 4333357-0 (Version None)
Quarter: 2004Q2

REPORT INFORMATION
  Report Type: 
  Country: None (occurrence: None)
  Receive Date: 20040406
  Receipt Date: 20040323
  Transmission Date: 20050107
  Serious: Yes (Disabling)
  Sender: FDA-Public Use
  Company Number: GB-MERCK-0403GBR00230

PATIENT
  Sex: Male

DRUGS (4)
  1. LANSOPRAZOLE [Concomitant]
     Indication: DUODENAL ULCER
     Route: 048
     Dates: start: 19900101
  2. MORPHINE SULFATE [Concomitant]
     Indication: OSTEOARTHRITIS
     Route: 048
  3. PSYLLIUM HUSK AND SENNA [Concomitant]
     Indication: CONSTIPATION
     Route: 048
     Dates: start: 19990101
  4. VIOXX [Suspect]
     Indication: OSTEOARTHRITIS
     Route: 048
     Dates: start: 20040216, end: 20040302

REACTIONS (4)
  - DUODENAL ULCER [None]
  - DYSPNOEA [None]
  - DYSPNOEA EXERTIONAL [None]
  - SWELLING FACE [None]
